FAERS Safety Report 8204373-3 (Version None)
Quarter: 2012Q1

REPORT INFORMATION
  Report Type: 
  Country: None (occurrence: None)
  Receive Date: 20120313
  Receipt Date: 20120313
  Transmission Date: 20120608
  Serious: Yes (Death, Hospitalization)
  Sender: FDA-Public Use
  Company Number: None

PATIENT
  Age: 68 Year
  Sex: Male
  Weight: 132.44 kg

DRUGS (1)
  1. AFINITOR [Suspect]
     Indication: RENAL CELL CARCINOMA
     Dosage: 10MG
     Route: 048
     Dates: start: 20120211, end: 20120307

REACTIONS (7)
  - CARDIAC ARREST [None]
  - ELECTROLYTE IMBALANCE [None]
  - RENAL FAILURE [None]
  - RESPIRATORY ARREST [None]
  - ELECTROCARDIOGRAM QRS COMPLEX ABNORMAL [None]
  - UNRESPONSIVE TO STIMULI [None]
  - BLADDER DILATATION [None]
